FAERS Safety Report 7692031-3 (Version None)
Quarter: 2011Q3

REPORT INFORMATION
  Report Type: 
  Country: None (occurrence: None)
  Receive Date: 20110818
  Receipt Date: 20110808
  Transmission Date: 20111222
  Serious: Yes (Other)
  Sender: FDA-Public Use
  Company Number: CA-JNJFOC-20110310243

PATIENT
  Sex: Female
  Weight: 62 kg

DRUGS (2)
  1. REMICADE [Suspect]
     Indication: CROHN'S DISEASE
     Route: 042
     Dates: start: 20050901, end: 20110609
  2. REMICADE [Suspect]
     Indication: COLITIS
     Route: 042
     Dates: start: 20050901, end: 20110609

REACTIONS (2)
  - MATERNAL EXPOSURE DURING PREGNANCY [None]
  - PRENATAL SCREENING TEST ABNORMAL [None]
